FAERS Safety Report 10467551 (Version 1)
Quarter: 2014Q3

REPORT INFORMATION
  Report Type: Spontaneous
  Country: US (occurrence: US)
  Receive Date: 20140922
  Receipt Date: 20140922
  Transmission Date: 20150326
  Serious: Yes (Death, Hospitalization, Other)
  Sender: FDA-Public Use
  Company Number: US-B.I. PHARMACEUTICALS,INC./RIDGEFIELD-2014-BI-44254BP

PATIENT
  Age: 73 Year
  Sex: Female

DRUGS (7)
  1. CALCIUM/VITAMIN D [Concomitant]
     Active Substance: CALCIUM\VITAMIN D
     Indication: PRODUCT USED FOR UNKNOWN INDICATION
     Dosage: 1 ANZ
     Route: 048
  2. VITAMINE C [Concomitant]
     Indication: PRODUCT USED FOR UNKNOWN INDICATION
     Dosage: 1 ANZ
     Route: 048
  3. FISH OIL [Concomitant]
     Active Substance: FISH OIL
     Indication: PRODUCT USED FOR UNKNOWN INDICATION
     Dosage: 1 ANZ
     Route: 048
  4. MULTIVITAMIN [Concomitant]
     Active Substance: VITAMINS
     Indication: PRODUCT USED FOR UNKNOWN INDICATION
     Dosage: 1 ANZ
     Route: 048
  5. VITAMIN B12 [Concomitant]
     Active Substance: CYANOCOBALAMIN
     Indication: PRODUCT USED FOR UNKNOWN INDICATION
     Dosage: 1 ANZ
     Route: 048
  6. FLEXERIL [Concomitant]
     Active Substance: CYCLOBENZAPRINE HYDROCHLORIDE
     Indication: PRODUCT USED FOR UNKNOWN INDICATION
     Dosage: 3 ANZ
     Route: 048
  7. PRADAXA [Suspect]
     Active Substance: DABIGATRAN ETEXILATE MESYLATE
     Indication: ATRIAL FIBRILLATION
     Dosage: 150 MG
     Route: 065
     Dates: start: 20140201, end: 20140201

REACTIONS (15)
  - Pelvic haematoma [Unknown]
  - Acute respiratory failure [Unknown]
  - Hypotension [Unknown]
  - Haematuria [Unknown]
  - Ischaemic hepatitis [Unknown]
  - Metabolic acidosis [Fatal]
  - Renal cyst [Unknown]
  - Renal failure acute [Unknown]
  - Abdominal wall haematoma [Unknown]
  - Disseminated intravascular coagulation [Unknown]
  - Intestinal ischaemia [Unknown]
  - Haemorrhagic anaemia [Fatal]
  - Hydronephrosis [Unknown]
  - Ureteric obstruction [Unknown]
  - Haematemesis [Unknown]

NARRATIVE: CASE EVENT DATE: 201402
